FAERS Safety Report 14237826 (Version 5)
Quarter: 2018Q1

REPORT INFORMATION
  Report Type: Report from Study
  Country: None (occurrence: CO)
  Receive Date: 20171130
  Receipt Date: 20180305
  Transmission Date: 20180508
  Serious: Yes (Hospitalization, Other)
  Sender: FDA-Public Use
  Company Number: CO-ABBVIE-17K-036-2176845-00

PATIENT
  Age: 78 Year
  Sex: Male

DRUGS (1)
  1. HUMIRA [Suspect]
     Active Substance: ADALIMUMAB
     Indication: PSORIASIS
     Route: 058
     Dates: start: 20170922, end: 20171114

REACTIONS (11)
  - Drowning [Unknown]
  - Upper airway obstruction [Recovering/Resolving]
  - Dyspnoea [Unknown]
  - Pleural effusion [Recovering/Resolving]
  - Pyrexia [Not Recovered/Not Resolved]
  - Pleural effusion [Recovering/Resolving]
  - Fatigue [Recovering/Resolving]
  - Chest pain [Recovering/Resolving]
  - Choking sensation [Recovering/Resolving]
  - Chills [Unknown]
  - Productive cough [Not Recovered/Not Resolved]

NARRATIVE: CASE EVENT DATE: 2017
